FAERS Safety Report 21214456 (Version 4)
Quarter: 2022Q3

REPORT INFORMATION
  Report Type: Report from Study
  Country: CN (occurrence: CN)
  Receive Date: 20220816
  Receipt Date: 20220923
  Transmission Date: 20221027
  Serious: Yes (Hospitalization)
  Sender: FDA-Public Use
  Company Number: CN-NOVARTISPH-NVSC2022CN122992

PATIENT
  Age: 67 Year
  Sex: Male
  Weight: 53 kg

DRUGS (28)
  1. OCIPERLIMAB [Suspect]
     Active Substance: OCIPERLIMAB
     Indication: Non-small cell lung cancer metastatic
     Dosage: 900 MG, C1D1
     Route: 042
     Dates: start: 20220515
  2. OCIPERLIMAB [Suspect]
     Active Substance: OCIPERLIMAB
     Dosage: UNK, C3D1
     Route: 042
     Dates: start: 20220707
  3. OCIPERLIMAB [Suspect]
     Active Substance: OCIPERLIMAB
     Dosage: 900 MG, C6D1
     Route: 042
     Dates: start: 20220913
  4. TISLELIZUMAB [Suspect]
     Active Substance: TISLELIZUMAB
     Indication: Non-small cell lung cancer metastatic
     Dosage: 200 MG, C1D1
     Route: 042
     Dates: start: 20220515
  5. TISLELIZUMAB [Suspect]
     Active Substance: TISLELIZUMAB
     Dosage: UNK, C3D1
     Route: 042
     Dates: start: 20220707
  6. TISLELIZUMAB [Suspect]
     Active Substance: TISLELIZUMAB
     Dosage: 200 MG, C6D1
     Route: 042
     Dates: start: 20220913
  7. PACLITAXEL [Suspect]
     Active Substance: PACLITAXEL
     Indication: Non-small cell lung cancer metastatic
     Dosage: 165 MG, C1D1
     Route: 042
     Dates: start: 20220515
  8. PACLITAXEL [Suspect]
     Active Substance: PACLITAXEL
     Dosage: UNK, C1D15
     Route: 042
     Dates: start: 20220529
  9. PACLITAXEL [Suspect]
     Active Substance: PACLITAXEL
     Dosage: UNK, C2D1
     Route: 042
     Dates: start: 20220608
  10. PACLITAXEL [Suspect]
     Active Substance: PACLITAXEL
     Dosage: UNK, C2D8
     Route: 042
     Dates: start: 20220615
  11. PACLITAXEL [Suspect]
     Active Substance: PACLITAXEL
     Dosage: UNK, C3D1
     Route: 042
     Dates: start: 20220707
  12. CEFTRIAXONE SODIUM [Concomitant]
     Active Substance: CEFTRIAXONE SODIUM
     Indication: Product used for unknown indication
     Dosage: UNK
     Route: 065
     Dates: start: 20220516, end: 20220517
  13. CELECOXIB [Concomitant]
     Active Substance: CELECOXIB
     Indication: Product used for unknown indication
     Dosage: UNK
     Route: 065
     Dates: start: 20220402, end: 20220428
  14. ONDANSETRON HYDROCHLORIDE [Concomitant]
     Active Substance: ONDANSETRON HYDROCHLORIDE
     Indication: Product used for unknown indication
     Dosage: UNK
     Route: 065
     Dates: start: 20220515, end: 20220521
  15. COMPOUND PARACETAMOL [Concomitant]
     Indication: Product used for unknown indication
     Dosage: UNK
     Route: 065
     Dates: start: 20220506, end: 20220508
  16. INDOMETHACIN [Concomitant]
     Active Substance: INDOMETHACIN
     Indication: Product used for unknown indication
     Dosage: UNK
     Route: 065
     Dates: start: 20220507, end: 20220514
  17. SODIUM CHLORIDE [Concomitant]
     Active Substance: SODIUM CHLORIDE
     Indication: Product used for unknown indication
     Dosage: UNK
     Route: 065
     Dates: start: 20220505, end: 20220517
  18. OMEPRAZOLE [Concomitant]
     Active Substance: OMEPRAZOLE
     Indication: Product used for unknown indication
     Dosage: UNK
     Route: 065
     Dates: start: 20220427, end: 20220510
  19. POTASSIUM CHLORIDE [Concomitant]
     Active Substance: POTASSIUM CHLORIDE
     Indication: Product used for unknown indication
     Dosage: UNK
     Route: 065
     Dates: start: 20220504, end: 20220516
  20. METOCLOPRAMIDE DIHYDROCHLORIDE MONOHYDRATE [Concomitant]
     Indication: Product used for unknown indication
     Dosage: UNK
     Route: 065
     Dates: start: 20220515, end: 20220517
  21. AMBROXOL HYDROCHLORIDE [Concomitant]
     Active Substance: AMBROXOL HYDROCHLORIDE
     Indication: Product used for unknown indication
     Dosage: UNK
     Route: 065
     Dates: start: 20220504, end: 20220519
  22. TERBUTALINE [Concomitant]
     Active Substance: TERBUTALINE
     Indication: Product used for unknown indication
     Dosage: UNK
     Route: 065
     Dates: start: 20220504, end: 20220515
  23. IPRATROPIUM BROMIDE [Concomitant]
     Active Substance: IPRATROPIUM BROMIDE
     Indication: Product used for unknown indication
     Dosage: UNK
     Route: 065
     Dates: start: 20220504, end: 20220515
  24. KETOTIFEN FUMARATE [Concomitant]
     Active Substance: KETOTIFEN FUMARATE
     Indication: Product used for unknown indication
     Dosage: UNK
     Route: 065
     Dates: start: 20220511, end: 20220516
  25. COMPOUND GLYCYRRHIZA [Concomitant]
     Indication: Product used for unknown indication
     Dosage: UNK
     Route: 065
     Dates: start: 20220516, end: 20220520
  26. GLUTATHIONE [Concomitant]
     Active Substance: GLUTATHIONE
     Indication: Product used for unknown indication
     Dosage: UNK
     Route: 065
     Dates: start: 20220511
  27. DESLORATADINE [Concomitant]
     Active Substance: DESLORATADINE
     Indication: Product used for unknown indication
     Dosage: UNK
     Route: 065
     Dates: start: 20220516, end: 20220521
  28. LEVOFLOXACIN;SODIUM CHLORIDE [Concomitant]
     Indication: Product used for unknown indication
     Dosage: UNK
     Route: 065
     Dates: start: 20220516, end: 20220517

REACTIONS (2)
  - Lung abscess [Recovering/Resolving]
  - Pneumonia [Recovering/Resolving]

NARRATIVE: CASE EVENT DATE: 20220519
